FAERS Safety Report 14419018 (Version 1)
Quarter: 2018Q1

REPORT INFORMATION
  Report Type: Spontaneous
  Country: IT (occurrence: IT)
  Receive Date: 20180122
  Receipt Date: 20180122
  Transmission Date: 20180509
  Serious: Yes (Death, Hospitalization)
  Sender: FDA-Public Use
  Company Number: IT-IMPAX LABORATORIES, INC-2018-IPXL-00147

PATIENT
  Age: 39 Year
  Sex: Male

DRUGS (2)
  1. PROPRANOLOL HYDROCHLORIDE IR [Suspect]
     Active Substance: PROPRANOLOL HYDROCHLORIDE
     Indication: THYROTOXIC CRISIS
     Dosage: 2 MG, UNK
     Route: 042
  2. PROPRANOLOL HYDROCHLORIDE IR [Suspect]
     Active Substance: PROPRANOLOL HYDROCHLORIDE
     Dosage: 5 MG INFUSED AT A RATE OF 0.16 MG/MIN OVER 30 MINUTES
     Route: 042

REACTIONS (5)
  - Coma [Fatal]
  - Cardio-respiratory arrest [Fatal]
  - Supraventricular tachycardia [Unknown]
  - Cardiogenic shock [Fatal]
  - Multiple organ dysfunction syndrome [Fatal]
